FAERS Safety Report 8388404-6 (Version None)
Quarter: 2012Q2

REPORT INFORMATION
  Report Type: 
  Country: None (occurrence: None)
  Receive Date: 20120525
  Receipt Date: 20120514
  Transmission Date: 20120825
  Serious: Yes (Death)
  Sender: FDA-Public Use
  Company Number: US-ELI_LILLY_AND_COMPANY-US201203000971

PATIENT
  Sex: Female
  Weight: 106.58 kg

DRUGS (16)
  1. ZYPREXA RELPREVV [Suspect]
     Indication: SCHIZOPHRENIA
     Dosage: 300 MG, UNKNOWN
     Dates: start: 20111125, end: 20120101
  2. VITAMIN D [Concomitant]
  3. DETROL [Concomitant]
     Dosage: 2 MG, UNK
     Route: 048
  4. TYLENOL (CAPLET) [Concomitant]
     Dosage: 650 MG, UNK
     Route: 048
  5. ADVAIR DISKUS 100/50 [Concomitant]
  6. ZOLOFT [Concomitant]
     Dosage: 100 MG Q MORNING
     Route: 048
  7. COMBIVENT [Concomitant]
  8. ZYPREXA RELPREVV [Suspect]
     Dosage: 405 MG, Q 2 WEEKS
     Route: 030
     Dates: start: 20120128
  9. ATIVAN [Concomitant]
     Dosage: 1 MG, UNK
     Route: 048
  10. SIMVASTATIN [Concomitant]
     Dosage: 100 MG, UNK
     Route: 048
  11. MIRALAX [Concomitant]
     Dosage: 17 G, UNK
     Route: 048
  12. DEPAKOTE [Concomitant]
     Route: 048
  13. MULTI-VITAMIN [Concomitant]
     Route: 048
  14. VIT B6 [Concomitant]
     Dosage: 250 MG, UNK
     Route: 048
  15. OYSTER SHELL CALCIUM [Concomitant]
     Dosage: 500 MG, UNK
  16. HYDROCODONE BITARTRATE [Concomitant]
     Indication: PAIN

REACTIONS (1)
  - LUNG NEOPLASM MALIGNANT [None]
